FAERS Safety Report 9005766 (Version 1)
Quarter: 2013Q1

REPORT INFORMATION
  Report Type: Spontaneous
  Country: US (occurrence: US)
  Receive Date: 20130109
  Receipt Date: 20130109
  Transmission Date: 20140127
  Serious: No
  Sender: FDA-Public Use
  Company Number: US-ABBOTT-12P-163-0965208-00

PATIENT
  Sex: Female
  Weight: 72.64 kg

DRUGS (2)
  1. HYDROCODONE/ACETAMINOPHEN [Suspect]
     Indication: PAIN
     Dates: start: 2000, end: 2000
  2. HYDROCODONE/ACETAMINOPHEN [Suspect]
     Indication: ROAD TRAFFIC ACCIDENT

REACTIONS (1)
  - Vomiting [Recovered/Resolved]
